FAERS Safety Report 25388658 (Version 1)
Quarter: 2025Q2

REPORT INFORMATION
  Report Type: Spontaneous
  Country: IN (occurrence: IN)
  Receive Date: 20250603
  Receipt Date: 20250603
  Transmission Date: 20250717
  Serious: Yes (Hospitalization, Other)
  Sender: LEGACY PHARMACEUTICAL PACKAGING
  Company Number: IN-LEGACY PHARMA INC. SEZC-LGP202505-000170

PATIENT
  Age: 14 Year
  Sex: Female

DRUGS (7)
  1. ATROPINE SULFATE\DIFENOXIN HYDROCHLORIDE [Suspect]
     Active Substance: ATROPINE SULFATE\DIFENOXIN HYDROCHLORIDE
     Indication: Chemical poisoning
     Route: 042
  2. ATROPINE SULFATE\DIFENOXIN HYDROCHLORIDE [Suspect]
     Active Substance: ATROPINE SULFATE\DIFENOXIN HYDROCHLORIDE
     Route: 042
  3. ATROPINE SULFATE\DIFENOXIN HYDROCHLORIDE [Suspect]
     Active Substance: ATROPINE SULFATE\DIFENOXIN HYDROCHLORIDE
     Route: 042
  4. RANITIDINE [Concomitant]
     Active Substance: RANITIDINE
     Indication: Chemical poisoning
     Route: 042
  5. RANITIDINE [Concomitant]
     Active Substance: RANITIDINE
     Route: 042
  6. PRALIDOXIME [Concomitant]
     Active Substance: PRALIDOXIME
     Indication: Chemical poisoning
     Route: 042
  7. PRALIDOXIME [Concomitant]
     Active Substance: PRALIDOXIME
     Dosage: 500 MILLIGRAM, Q8H
     Route: 042

REACTIONS (6)
  - Delirium [Recovered/Resolved]
  - Hallucination [Unknown]
  - Mydriasis [Unknown]
  - Condition aggravated [Unknown]
  - Overdose [Unknown]
  - Product use in unapproved indication [Unknown]
